FAERS Safety Report 7465767-7 (Version None)
Quarter: 2011Q2

REPORT INFORMATION
  Report Type: 
  Country: None (occurrence: None)
  Receive Date: 20110509
  Receipt Date: 20110504
  Transmission Date: 20111010
  Serious: Yes (Hospitalization)
  Sender: FDA-Public Use
  Company Number: RO-ABBOTT-11P-135-0723615-00

PATIENT
  Sex: Male
  Weight: 72 kg

DRUGS (1)
  1. HUMIRA [Suspect]
     Indication: ANKYLOSING SPONDYLITIS
     Route: 058
     Dates: start: 20100915, end: 20110315

REACTIONS (6)
  - WEIGHT DECREASED [None]
  - PERITONEAL TUBERCULOSIS [None]
  - REFLUX OESOPHAGITIS [None]
  - VOMITING [None]
  - GASTRITIS [None]
  - NAUSEA [None]
